FAERS Safety Report 16750832 (Version 1)
Quarter: 2019Q3

REPORT INFORMATION
  Report Type: Report from Study
  Country: US (occurrence: US)
  Receive Date: 20190828
  Receipt Date: 20190828
  Transmission Date: 20191005
  Serious: Yes (Hospitalization)
  Sender: FDA-Public Use
  Company Number: US-MYLANLABS-2019M1080507

PATIENT
  Age: 81 Year
  Sex: Female

DRUGS (1)
  1. DIGOXIN. [Suspect]
     Active Substance: DIGOXIN
     Indication: CARDIAC AMYLOIDOSIS
     Dosage: RECEIVED DIGOXIN FOR }4MONTHS
     Route: 065

REACTIONS (2)
  - Supraventricular tachycardia [Unknown]
  - Nodal arrhythmia [Unknown]
